FAERS Safety Report 20363085 (Version 3)
Quarter: 2022Q1

REPORT INFORMATION
  Report Type: Spontaneous
  Country: US (occurrence: US)
  Receive Date: 20220121
  Receipt Date: 20220207
  Transmission Date: 20220423
  Serious: Yes (Other)
  Sender: FDA-Public Use
  Company Number: US-PFIZER INC-202200037278

PATIENT
  Age: 55 Year
  Sex: Male

DRUGS (3)
  1. INLYTA [Suspect]
     Active Substance: AXITINIB
     Dosage: 5 MG
     Dates: start: 20211122
  2. INLYTA [Suspect]
     Active Substance: AXITINIB
     Dosage: 5 MG
     Dates: start: 20211227
  3. INLYTA [Suspect]
     Active Substance: AXITINIB
     Dosage: 5 MG
     Dates: start: 20220112, end: 20220124

REACTIONS (1)
  - Hypertension [Unknown]
